FAERS Safety Report 17956031 (Version 3)
Quarter: 2020Q4

REPORT INFORMATION
  Report Type: Spontaneous
  Country: US (occurrence: US)
  Receive Date: 20200629
  Receipt Date: 20201104
  Transmission Date: 20210113
  Serious: No
  Sender: FDA-Public Use
  Company Number: US-PFIZER INC-2020214546

PATIENT
  Age: 64 Year
  Sex: Male
  Weight: 111.13 kg

DRUGS (2)
  1. PRISTIQ EXTENDED-RELEASE [Suspect]
     Active Substance: DESVENLAFAXINE SUCCINATE
     Indication: DEPRESSION
     Dosage: 100 MG, 1X/DAY
     Route: 048
  2. BUPROPION. [Concomitant]
     Active Substance: BUPROPION
     Dosage: 900 MG, DAILY (THREE 300MG TABLETS PER DAY)

REACTIONS (2)
  - Drug ineffective [Recovered/Resolved]
  - Weight decreased [Unknown]
